FAERS Safety Report 15272725 (Version 1)
Quarter: 2018Q3

REPORT INFORMATION
  Report Type: Spontaneous
  Country: AT (occurrence: AT)
  Receive Date: 20180813
  Receipt Date: 20180813
  Transmission Date: 20181010
  Serious: Yes (Other)
  Sender: FDA-Public Use
  Company Number: AT-PFIZER INC-2018320620

PATIENT
  Age: 73 Year
  Sex: Female

DRUGS (2)
  1. CYKLOKAPRON [Suspect]
     Active Substance: TRANEXAMIC ACID
     Indication: ANAESTHESIA
     Dosage: I.V. INTRAOPERATIVELY
     Route: 042
     Dates: start: 20180425, end: 20180425
  2. KETANEST [Suspect]
     Active Substance: KETAMINE HYDROCHLORIDE
     Indication: ANAESTHESIA
     Dosage: I.V. INTRAOPERATIVELY
     Route: 042
     Dates: start: 20180425, end: 20180425

REACTIONS (3)
  - Type I hypersensitivity [Recovered/Resolved]
  - Product use in unapproved indication [Unknown]
  - Urticaria [Recovered/Resolved]

NARRATIVE: CASE EVENT DATE: 20180425
